FAERS Safety Report 20467000 (Version 3)
Quarter: 2022Q1

REPORT INFORMATION
  Report Type: Report from Study
  Country: AT (occurrence: AT)
  Receive Date: 20220214
  Receipt Date: 20220223
  Transmission Date: 20220423
  Serious: Yes (Hospitalization)
  Sender: FDA-Public Use
  Company Number: AT-ABBVIE-22K-009-4275841-00

PATIENT
  Age: 53 Year
  Sex: Male

DRUGS (2)
  1. CARBIDOPA\LEVODOPA [Suspect]
     Active Substance: CARBIDOPA\LEVODOPA
     Indication: Parkinson^s disease
     Dosage: 16 THERAPY: MD: 9ML, CR DAYTIME: 4.3ML/H; CR NIGHTTIME: 0.0ML/H, ED: 1,5.ML
     Route: 050
     Dates: start: 20200608
  2. CARBIDOPA\LEVODOPA [Suspect]
     Active Substance: CARBIDOPA\LEVODOPA

REACTIONS (3)
  - Device expulsion [Not Recovered/Not Resolved]
  - Device breakage [Unknown]
  - Off label use [Recovered/Resolved]

NARRATIVE: CASE EVENT DATE: 20220210
